FAERS Safety Report 7637224-6 (Version None)
Quarter: 2011Q3

REPORT INFORMATION
  Report Type: 
  Country: None (occurrence: None)
  Receive Date: 20110726
  Receipt Date: 20110712
  Transmission Date: 20111222
  Serious: Yes (Other)
  Sender: FDA-Public Use
  Company Number: PHHY2011KR62381

PATIENT

DRUGS (3)
  1. LORAZEPAM [Concomitant]
     Dosage: UNK UKN, UNK
  2. ZYPREXA [Concomitant]
     Dosage: UNK UKN, UNK
  3. CARBAMAZEPINE [Suspect]
     Dosage: UNK UKN, UNK
     Route: 048

REACTIONS (2)
  - DIABETIC KETOACIDOSIS [None]
  - THIRST [None]
